FAERS Safety Report 7579004-6 (Version None)
Quarter: 2011Q2

REPORT INFORMATION
  Report Type: 
  Country: None (occurrence: None)
  Receive Date: 20110628
  Receipt Date: 20110617
  Transmission Date: 20111010
  Serious: Yes (Other)
  Sender: FDA-Public Use
  Company Number: PHHY2011GB53412

PATIENT

DRUGS (4)
  1. SEROQUEL [Suspect]
     Dosage: 450 MG, QD
  2. RAMIPRIL [Suspect]
     Indication: RENAL VESSEL DISORDER
     Route: 048
  3. ESCITALOPRAM [Concomitant]
     Indication: ANXIETY
     Dosage: 10 MG, QD
  4. VALPROIC ACID [Concomitant]
     Indication: AFFECTIVE DISORDER
     Dosage: 800 MG, QD
     Route: 048

REACTIONS (6)
  - DRUG INTOLERANCE [None]
  - ANXIETY [None]
  - DIZZINESS [None]
  - DIVERTICULITIS [None]
  - ORTHOSTATIC HYPOTENSION [None]
  - DIARRHOEA [None]
